FAERS Safety Report 13512382 (Version 1)
Quarter: 2017Q2

REPORT INFORMATION
  Report Type: Spontaneous
  Country: US (occurrence: US)
  Receive Date: 20170504
  Receipt Date: 20170504
  Transmission Date: 20170830
  Serious: Yes (Hospitalization)
  Sender: FDA-Public Use
  Company Number: None

PATIENT
  Age: 58 Year
  Sex: Female

DRUGS (1)
  1. ZORTRESS [Suspect]
     Active Substance: EVEROLIMUS

REACTIONS (5)
  - Respiratory tract congestion [None]
  - Dyspnoea [None]
  - Asthma [None]
  - Cough [None]
  - Lung disorder [None]

NARRATIVE: CASE EVENT DATE: 20170501
